FAERS Safety Report 12439882 (Version 1)
Quarter: 2016Q2

REPORT INFORMATION
  Report Type: Report from Study
  Country: DE (occurrence: JP)
  Receive Date: 20160606
  Receipt Date: 20160606
  Transmission Date: 20160815
  Serious: Yes (Hospitalization)
  Sender: FDA-Public Use
  Company Number: JP-FRI-1000084052

PATIENT
  Sex: Female
  Weight: 52 kg

DRUGS (9)
  1. EBRANTIL [Concomitant]
     Active Substance: URAPIDIL
     Dates: end: 201503
  2. BLOPRESS [Concomitant]
     Active Substance: CANDESARTAN CILEXETIL
     Dates: end: 201503
  3. MEMANTINE. [Suspect]
     Active Substance: MEMANTINE
     Dosage: 10 MG
     Route: 048
     Dates: start: 20120809, end: 20150315
  4. YOKUKANSAN (ANGELICA ACUTILOBA ROOT, ATRACTYLODES LA [Concomitant]
     Dates: start: 20111214, end: 201503
  5. MAGMITT [Concomitant]
     Active Substance: MAGNESIUM OXIDE
     Dates: end: 201503
  6. MEMANTINE. [Suspect]
     Active Substance: MEMANTINE
     Indication: DEMENTIA ALZHEIMER^S TYPE
     Dosage: 5 MG
     Route: 048
     Dates: start: 20120613, end: 20120808
  7. ARICEPT [Suspect]
     Active Substance: DONEPEZIL HYDROCHLORIDE
     Indication: DEMENTIA ALZHEIMER^S TYPE
     Dosage: 3 MG
     Route: 048
     Dates: start: 20080117, end: 201503
  8. CRESTOR [Concomitant]
     Active Substance: ROSUVASTATIN CALCIUM
     Dates: end: 201503
  9. NORVASC [Concomitant]
     Active Substance: AMLODIPINE BESYLATE
     Dates: end: 201503

REACTIONS (2)
  - Pneumonia [Unknown]
  - Dysphagia [None]

NARRATIVE: CASE EVENT DATE: 201503
